FAERS Safety Report 16672866 (Version 1)
Quarter: 2019Q3

REPORT INFORMATION
  Report Type: Spontaneous
  Country: US (occurrence: US)
  Receive Date: 20190806
  Receipt Date: 20190806
  Transmission Date: 20191004
  Serious: Yes (Hospitalization)
  Sender: FDA-Public Use
  Company Number: US-CELGENEUS-USA-20190711126

PATIENT
  Sex: Male

DRUGS (2)
  1. XOSPATA [Concomitant]
     Active Substance: GILTERITINIB
     Indication: ACUTE MYELOID LEUKAEMIA
     Route: 065
     Dates: start: 20190404
  2. IDHIFA [Suspect]
     Active Substance: ENASIDENIB MESYLATE
     Indication: ACUTE MYELOID LEUKAEMIA
     Route: 048
     Dates: start: 20190404

REACTIONS (1)
  - Lower respiratory tract infection fungal [Not Recovered/Not Resolved]

NARRATIVE: CASE EVENT DATE: 2019
